FAERS Safety Report 9524683 (Version 2)
Quarter: 2013Q3

REPORT INFORMATION
  Report Type: Spontaneous
  Country: JP (occurrence: JP)
  Receive Date: 20130916
  Receipt Date: 20130916
  Transmission Date: 20140515
  Serious: Yes (Other)
  Sender: FDA-Public Use
  Company Number: PHHY2013JP071557

PATIENT
  Age: 78 Year
  Sex: Male

DRUGS (2)
  1. SANDOSTATIN [Suspect]
     Indication: PANCREATIC FISTULA
     Dosage: 300 UG, DAILY
     Route: 058
     Dates: start: 20130612, end: 20130626
  2. SANDOSTATIN [Suspect]
     Indication: OFF LABEL USE

REACTIONS (4)
  - Nephropathy [Unknown]
  - Hyponatraemia [Not Recovered/Not Resolved]
  - Blood creatinine increased [Not Recovered/Not Resolved]
  - Henoch-Schonlein purpura nephritis [Unknown]
